FAERS Safety Report 11218431 (Version 1)
Quarter: 2015Q2

REPORT INFORMATION
  Report Type: Spontaneous
  Country: GB (occurrence: GB)
  Receive Date: 20150625
  Receipt Date: 20150625
  Transmission Date: 20150821
  Serious: Yes (Hospitalization)
  Sender: FDA-Public Use
  Company Number: GB-PFIZER INC-2015204245

PATIENT
  Age: 69 Year
  Sex: Female

DRUGS (3)
  1. EVEROLIMUS [Suspect]
     Active Substance: EVEROLIMUS
     Dosage: 10 MG, 1X/DAY
     Route: 048
  2. EVEROLIMUS [Suspect]
     Active Substance: EVEROLIMUS
     Indication: BREAST MASS
     Dosage: 5 MG, 1X/DAY
     Route: 048
  3. EXEMESTANE. [Suspect]
     Active Substance: EXEMESTANE
     Indication: BREAST MASS
     Dosage: 25 MG, 1X/DAY
     Route: 065

REACTIONS (7)
  - Fatigue [Unknown]
  - Liver function test abnormal [Unknown]
  - Blood albumin decreased [Unknown]
  - Diarrhoea [Recovered/Resolved]
  - Rash [Unknown]
  - Weight decreased [Unknown]
  - Diarrhoea [Recovering/Resolving]
